FAERS Safety Report 8259580-0 (Version None)
Quarter: 2012Q2

REPORT INFORMATION
  Report Type: 
  Country: None (occurrence: None)
  Receive Date: 20120404
  Receipt Date: 20120330
  Transmission Date: 20120825
  Serious: Yes (Death, Hospitalization, Other)
  Sender: FDA-Public Use
  Company Number: PHHY2012MX028275

PATIENT
  Sex: Female

DRUGS (6)
  1. METHOTREXATE [Concomitant]
     Indication: SCLERODERMA
     Dosage: 500 MG, QW (500 MG ONCE A WEEK)
     Dates: start: 20060101
  2. ZOLEDRONOC ACID [Suspect]
     Indication: OSTEOPOROSIS
     Dosage: 5 MG/100 ML ONCE A YEAR
     Route: 042
     Dates: start: 20110301
  3. ALBUTEROL [Concomitant]
     Dosage: ONCE (AND IF NECCESSARY TWICE A DAY)
  4. OMEPRAZOLE [Concomitant]
     Indication: GASTRITIS
  5. CALCIUM EFFERVESCENT TABLET [Concomitant]
     Indication: OSTEOPOROSIS
     Dosage: CALCIUM EFFERVESCENT TABLETS A DAY
     Dates: end: 20110301
  6. DICLOFENAC SODIUM [Concomitant]
     Indication: PAIN

REACTIONS (5)
  - RENAL FAILURE [None]
  - BLOOD GLUCOSE DECREASED [None]
  - SCLERODERMA [None]
  - CARDIO-RESPIRATORY ARREST [None]
  - HYPOTENSION [None]
